FAERS Safety Report 15640676 (Version 5)
Quarter: 2019Q2

REPORT INFORMATION
  Report Type: Report from Study
  Country: EG (occurrence: EG)
  Receive Date: 20181120
  Receipt Date: 20190611
  Transmission Date: 20190711
  Serious: Yes (Hospitalization)
  Sender: FDA-Public Use
  Company Number: EG-SEATTLE GENETICS-2018SGN01038

PATIENT
  Sex: Male

DRUGS (6)
  1. PARACETAMOL [Concomitant]
     Active Substance: ACETAMINOPHEN
     Dosage: UNK
  2. PARACETAMOL [Concomitant]
     Active Substance: ACETAMINOPHEN
     Dosage: UNK
  3. BRENTUXIMAB VEDOTIN-MPI [Suspect]
     Active Substance: BRENTUXIMAB VEDOTIN
     Indication: HODGKIN^S DISEASE
     Dosage: UNK, Q21D
     Route: 042
     Dates: start: 20180310
  4. LIVER ALBUMIN [Concomitant]
     Dosage: UNK
     Route: 065
  5. PARACETAMOL [Concomitant]
     Active Substance: ACETAMINOPHEN
     Dosage: UNK
  6. PARACETAMOL [Concomitant]
     Active Substance: ACETAMINOPHEN
     Dosage: UNK

REACTIONS (7)
  - Hypoaesthesia [Unknown]
  - Herpes zoster [Unknown]
  - White blood cell count decreased [Not Recovered/Not Resolved]
  - Hodgkin^s disease [Unknown]
  - Neuropathy peripheral [Unknown]
  - Lung abscess [Unknown]
  - Ulcer [Unknown]
